FAERS Safety Report 17187786 (Version 3)
Quarter: 2019Q4

REPORT INFORMATION
  Report Type: Other
  Country: GR (occurrence: GR)
  Receive Date: 20191221
  Receipt Date: 20191226
  Transmission Date: 20200122
  Serious: Yes (Death, Life-Threatening, Other)
  Sender: FDA-Public Use
  Company Number: GR-ABBVIE-19K-066-3204902-00

PATIENT

DRUGS (1)
  1. IMBRUVICA [Suspect]
     Active Substance: IBRUTINIB
     Indication: CHRONIC LYMPHOCYTIC LEUKAEMIA
     Route: 048

REACTIONS (26)
  - Acute respiratory distress syndrome [Unknown]
  - Hypogammaglobulinaemia [Unknown]
  - Cardiac arrest [Fatal]
  - Pleural effusion [Unknown]
  - Staphylococcal infection [Unknown]
  - Diarrhoea [Unknown]
  - Atrial fibrillation [Unknown]
  - Upper respiratory tract infection [Unknown]
  - Peritonitis [Unknown]
  - Septic shock [Fatal]
  - Neutropenia [Unknown]
  - Ischaemic cerebral infarction [Fatal]
  - Pneumonia [Unknown]
  - Pneumocystis jirovecii pneumonia [Unknown]
  - Thrombocytopenia [Unknown]
  - Ecchymosis [Unknown]
  - Gingival bleeding [Unknown]
  - Urinary tract infection [Unknown]
  - Lichen planus [Unknown]
  - Neuroendocrine carcinoma of the skin [Fatal]
  - Hypertension [Unknown]
  - Autoimmune haemolytic anaemia [Recovered/Resolved]
  - Diabetic ketoacidosis [Unknown]
  - Transaminases increased [Unknown]
  - Lower respiratory tract infection [Unknown]
  - Haematuria [Unknown]
